FAERS Safety Report 23623471 (Version 1)
Quarter: 2024Q1

REPORT INFORMATION
  Report Type: Spontaneous
  Country: JP (occurrence: JP)
  Receive Date: 20240312
  Receipt Date: 20240312
  Transmission Date: 20240410
  Serious: Yes (Other)
  Sender: FDA-Public Use
  Company Number: JP-BAYER-2024A036395

PATIENT
  Sex: Male

DRUGS (2)
  1. NUBEQA [Suspect]
     Active Substance: DAROLUTAMIDE
     Indication: Hormone-dependent prostate cancer
     Dosage: 300 MG TABLETS 2 DF, BID 4 TABLETS TOTAL
     Route: 048
     Dates: start: 20240201, end: 20240201
  2. DOCETAXEL [Concomitant]
     Active Substance: DOCETAXEL\DOCETAXEL ANHYDROUS
     Indication: Hormone-dependent prostate cancer
     Dosage: UNK
     Dates: end: 20240201

REACTIONS (1)
  - Hormone-dependent prostate cancer [Unknown]

NARRATIVE: CASE EVENT DATE: 20240201
